FAERS Safety Report 14726952 (Version 3)
Quarter: 2018Q3

REPORT INFORMATION
  Report Type: Report from Study
  Country: US (occurrence: US)
  Receive Date: 20180406
  Receipt Date: 20180705
  Transmission Date: 20181010
  Serious: Yes (Hospitalization)
  Sender: FDA-Public Use
  Company Number: US-ASTELLAS-2018US016719

PATIENT
  Age: 64 Year
  Sex: Female
  Weight: 53 kg

DRUGS (2)
  1. ERLOTINIB [Suspect]
     Active Substance: ERLOTINIB
     Indication: NEOPLASM MALIGNANT
     Route: 048
     Dates: start: 20180310, end: 20180321
  2. ERLOTINIB [Suspect]
     Active Substance: ERLOTINIB
     Indication: LUNG NEOPLASM MALIGNANT
     Route: 048
     Dates: start: 20180322

REACTIONS (10)
  - Feeling hot [Unknown]
  - Skin ulcer [Unknown]
  - Feeling abnormal [Unknown]
  - Eye pruritus [Unknown]
  - Pruritus [Unknown]
  - Drug hypersensitivity [Not Recovered/Not Resolved]
  - Vomiting [Recovered/Resolved]
  - Diarrhoea [Recovered/Resolved]
  - Erythema [Unknown]
  - Nausea [Recovered/Resolved]

NARRATIVE: CASE EVENT DATE: 201803
